FAERS Safety Report 4844744-6 (Version None)
Quarter: 2005Q4

REPORT INFORMATION
  Report Type: 
  Country: None (occurrence: None)
  Receive Date: 20051129
  Receipt Date: 20051116
  Transmission Date: 20060501
  Serious: Yes (Life-Threatening, Disabling, Other)
  Sender: FDA-Public Use
  Company Number: HQWYE945710OCT05

PATIENT
  Age: 35 Year
  Sex: Female

DRUGS (7)
  1. RAPAMUNE [Suspect]
     Indication: KIDNEY TRANSPLANT REJECTION
     Dosage: 4.6 MG 1X PER 1 DAY
     Route: 048
     Dates: start: 20050915, end: 20051018
  2. RAPAMUNE [Suspect]
     Indication: PROPHYLAXIS AGAINST TRANSPLANT REJECTION
     Dosage: 4.6 MG 1X PER 1 DAY
     Route: 048
     Dates: start: 20050915, end: 20051018
  3. AZATHIOPRINE [Concomitant]
  4. PREDNISONE [Concomitant]
  5. CEFACLOR [Concomitant]
  6. KLIOGEST (ESTRADIOL/NORETHISTERONE ACETATE) [Concomitant]
  7. RECORMON (ERYTHROPOIETIN HUMAN) [Concomitant]

REACTIONS (1)
  - NEPHROTIC SYNDROME [None]
